FAERS Safety Report 6587821-4 (Version None)
Quarter: 2010Q1

REPORT INFORMATION
  Report Type: 
  Country: None (occurrence: None)
  Receive Date: 20100218
  Receipt Date: 20100211
  Transmission Date: 20100710
  Serious: Yes (Other)
  Sender: FDA-Public Use
  Company Number: PHHY2010BR07965

PATIENT
  Sex: Male

DRUGS (1)
  1. EXELON [Suspect]
     Dosage: 18MG/10 CM2
     Route: 062

REACTIONS (3)
  - SKIN DISORDER [None]
  - SKIN HAEMORRHAGE [None]
  - SKIN HYPERTROPHY [None]
